FAERS Safety Report 11454133 (Version 1)
Quarter: 2015Q3

REPORT INFORMATION
  Report Type: Spontaneous
  Country: US (occurrence: US)
  Receive Date: 20150831
  Receipt Date: 20150831
  Transmission Date: 20151125
  Serious: No
  Sender: FDA-Public Use
  Company Number: US-ELI_LILLY_AND_COMPANY-US200912002500

PATIENT
  Sex: Female
  Weight: 106.58 kg

DRUGS (18)
  1. COZAAR [Concomitant]
     Active Substance: LOSARTAN POTASSIUM
  2. NEXIUM [Concomitant]
     Active Substance: ESOMEPRAZOLE MAGNESIUM
  3. AMBIEN [Concomitant]
     Active Substance: ZOLPIDEM TARTRATE
  4. SYNTHROID [Concomitant]
     Active Substance: LEVOTHYROXINE SODIUM
  5. HYDROCHLOROTHIAZIDE. [Concomitant]
     Active Substance: HYDROCHLOROTHIAZIDE
  6. LASIX [Concomitant]
     Active Substance: FUROSEMIDE
  7. HUMALOG [Concomitant]
     Active Substance: INSULIN LISPRO
  8. FLEXERIL [Concomitant]
     Active Substance: CYCLOBENZAPRINE HYDROCHLORIDE
  9. BYETTA [Suspect]
     Active Substance: EXENATIDE
     Indication: TYPE 2 DIABETES MELLITUS
     Dosage: 5 UG, 2/D
     Route: 058
     Dates: start: 2007, end: 2008
  10. BYETTA [Suspect]
     Active Substance: EXENATIDE
     Dosage: 10 UG, 2/D
     Route: 058
     Dates: start: 200907
  11. POTASSIUM [Concomitant]
     Active Substance: POTASSIUM
  12. VYTORIN [Concomitant]
     Active Substance: EZETIMIBE\SIMVASTATIN
  13. MIRAPEX [Concomitant]
     Active Substance: PRAMIPEXOLE DIHYDROCHLORIDE
  14. FOSAMAX [Concomitant]
     Active Substance: ALENDRONATE SODIUM
  15. CYMBALTA [Suspect]
     Active Substance: DULOXETINE HYDROCHLORIDE
  16. BYETTA [Suspect]
     Active Substance: EXENATIDE
     Dosage: 5 UG, 2/D
     Route: 058
     Dates: start: 200906, end: 200907
  17. HUMALOG [Concomitant]
     Active Substance: INSULIN LISPRO
     Indication: TYPE 2 DIABETES MELLITUS
  18. LANTUS [Concomitant]
     Active Substance: INSULIN GLARGINE
     Indication: TYPE 2 DIABETES MELLITUS

REACTIONS (3)
  - Off label use [Not Recovered/Not Resolved]
  - Decreased appetite [Recovered/Resolved]
  - Weight decreased [Recovered/Resolved]

NARRATIVE: CASE EVENT DATE: 2007
